FAERS Safety Report 12832593 (Version 1)
Quarter: 2016Q4

REPORT INFORMATION
  Report Type: Spontaneous
  Country: US (occurrence: US)
  Receive Date: 20161010
  Receipt Date: 20161010
  Transmission Date: 20170207
  Serious: No
  Sender: FDA-Public Use
  Company Number: US-JAZZ-2016-US-013388

PATIENT
  Sex: Female

DRUGS (36)
  1. XYREM [Suspect]
     Active Substance: SODIUM OXYBATE
     Indication: CATAPLEXY
     Dosage: DOSE ADJUSTMENTS
     Route: 048
     Dates: start: 200711, end: 200910
  2. XYREM [Suspect]
     Active Substance: SODIUM OXYBATE
     Dosage: 4.5 G, BID
     Route: 048
     Dates: start: 201405
  3. AMBIEN [Concomitant]
     Active Substance: ZOLPIDEM TARTRATE
  4. BACLOFEN. [Concomitant]
     Active Substance: BACLOFEN
  5. GABAPENTIN. [Concomitant]
     Active Substance: GABAPENTIN
  6. XYREM [Suspect]
     Active Substance: SODIUM OXYBATE
     Indication: NARCOLEPSY
     Dosage: 2.25 G, BID
     Route: 048
     Dates: start: 200709, end: 200711
  7. MELOXICAM. [Concomitant]
     Active Substance: MELOXICAM
  8. ZALEPLON. [Concomitant]
     Active Substance: ZALEPLON
  9. LAMICTAL [Concomitant]
     Active Substance: LAMOTRIGINE
  10. MELATONIN [Concomitant]
     Active Substance: MELATONIN
  11. MULTI-DAY [Concomitant]
  12. XYREM [Suspect]
     Active Substance: SODIUM OXYBATE
     Dosage: 4.5 G, BID
     Route: 048
     Dates: start: 200910, end: 2010
  13. MAGNESIUM OXIDE. [Concomitant]
     Active Substance: MAGNESIUM OXIDE
  14. CYCLOBENZAPRINE HCL [Concomitant]
     Active Substance: CYCLOBENZAPRINE HYDROCHLORIDE
  15. TRAZODONE HYDROCHLORIDE. [Concomitant]
     Active Substance: TRAZODONE HYDROCHLORIDE
  16. DOXEPIN [Concomitant]
     Active Substance: DOXEPIN
  17. HALCION [Concomitant]
     Active Substance: TRIAZOLAM
  18. XYREM [Suspect]
     Active Substance: SODIUM OXYBATE
     Dosage: 4 G, BID
     Route: 048
     Dates: start: 201311, end: 201405
  19. KLOR-CON M10 [Concomitant]
     Active Substance: POTASSIUM CHLORIDE
  20. HYDROCHLOROTHIAZIDE. [Concomitant]
     Active Substance: HYDROCHLOROTHIAZIDE
  21. DYNACIN [Concomitant]
     Active Substance: MINOCYCLINE HYDROCHLORIDE
  22. PROVIGIL [Concomitant]
     Active Substance: MODAFINIL
  23. SPIRONOLACTONE. [Concomitant]
     Active Substance: SPIRONOLACTONE
  24. XYREM [Suspect]
     Active Substance: SODIUM OXYBATE
     Dosage: 3 G, BID
     Route: 048
     Dates: start: 201310, end: 201311
  25. ACANYA [Concomitant]
     Active Substance: BENZOYL PEROXIDE\CLINDAMYCIN PHOSPHATE
  26. CALCIUM +D [Concomitant]
     Active Substance: CALCIUM\VITAMIN D
  27. CEFADROXIL. [Concomitant]
     Active Substance: CEFADROXIL
  28. DIFFERIN [Concomitant]
     Active Substance: ADAPALENE
  29. PROPRANOLOL [Concomitant]
     Active Substance: PROPRANOLOL\PROPRANOLOL HYDROCHLORIDE
  30. ROBAXIN [Concomitant]
     Active Substance: METHOCARBAMOL
  31. IBUPROFEN. [Concomitant]
     Active Substance: IBUPROFEN
  32. LEXAPRO [Concomitant]
     Active Substance: ESCITALOPRAM OXALATE
  33. REMERON [Concomitant]
     Active Substance: MIRTAZAPINE
  34. RETIN-A [Concomitant]
     Active Substance: TRETINOIN
  35. RISPERDAL [Concomitant]
     Active Substance: RISPERIDONE
  36. XANAX [Concomitant]
     Active Substance: ALPRAZOLAM

REACTIONS (1)
  - Alopecia [Not Recovered/Not Resolved]
